FAERS Safety Report 21105473 (Version 2)
Quarter: 2022Q3

REPORT INFORMATION
  Report Type: Spontaneous
  Country: US (occurrence: US)
  Receive Date: 20220720
  Receipt Date: 20220907
  Transmission Date: 20221027
  Serious: No
  Sender: FDA-Public Use
  Company Number: US-PFIZER INC-202200935169

PATIENT
  Age: 16 Year
  Sex: Male
  Weight: 61.23 kg

DRUGS (1)
  1. GENOTROPIN [Suspect]
     Active Substance: SOMATROPIN
     Indication: Hypopituitarism
     Dosage: 2.8 MG, CYCLIC (SIX TIMES A WEEK)
     Dates: start: 2022

REACTIONS (3)
  - Device operational issue [Unknown]
  - Device defective [Unknown]
  - Drug dose omission by device [Unknown]
